FAERS Safety Report 11713449 (Version 1)
Quarter: 2015Q4

REPORT INFORMATION
  Report Type: Spontaneous
  Country: US (occurrence: US)
  Receive Date: 20151109
  Receipt Date: 20151109
  Transmission Date: 20160304
  Serious: No
  Sender: FDA-Public Use
  Company Number: US-ASTRAZENECA-2015SF06203

PATIENT
  Age: 50 Year
  Sex: Female

DRUGS (1)
  1. MOVANTIK [Suspect]
     Active Substance: NALOXEGOL OXALATE
     Route: 048

REACTIONS (4)
  - Chills [Unknown]
  - Hyperhidrosis [Unknown]
  - Pyrexia [Unknown]
  - Drug withdrawal syndrome [Unknown]
